FAERS Safety Report 7555017-5 (Version None)
Quarter: 2011Q2

REPORT INFORMATION
  Report Type: 
  Country: None (occurrence: None)
  Receive Date: 20110617
  Receipt Date: 20110614
  Transmission Date: 20111010
  Serious: Yes (Hospitalization)
  Sender: FDA-Public Use
  Company Number: DE-SANOFI-AVENTIS-2011SA037584

PATIENT
  Age: 48 Year
  Sex: Female
  Weight: 73 kg

DRUGS (4)
  1. DOCETAXEL [Suspect]
     Indication: BREAST CANCER
     Route: 041
     Dates: start: 20110506, end: 20110506
  2. SOLU-DECORTIN-H [Concomitant]
     Route: 042
     Dates: start: 20110506, end: 20110520
  3. FUROSEMIDE [Concomitant]
     Route: 048
     Dates: start: 20110520
  4. GEMCITABINE [Suspect]
     Indication: BREAST CANCER
     Route: 042
     Dates: start: 20110506, end: 20110520

REACTIONS (3)
  - GENERAL PHYSICAL HEALTH DETERIORATION [None]
  - CHEST DISCOMFORT [None]
  - CARDIOVASCULAR DISORDER [None]
